FAERS Safety Report 20953419 (Version 1)
Quarter: 2022Q2

REPORT INFORMATION
  Report Type: Spontaneous
  Country: CO (occurrence: CO)
  Receive Date: 20220613
  Receipt Date: 20220613
  Transmission Date: 20220721
  Serious: Yes (Disabling, Other)
  Sender: FDA-Public Use
  Company Number: CO-BIOMARINAP-CO-2022-143794

PATIENT
  Age: 21 Year
  Sex: Female
  Weight: 24 kg

DRUGS (1)
  1. NAGLAZYME [Suspect]
     Active Substance: GALSULFASE
     Indication: Mucopolysaccharidosis VI
     Dosage: 24 MILLIGRAM, QW
     Route: 042
     Dates: start: 200806

REACTIONS (3)
  - Myelopathy [Unknown]
  - Quadriparesis [Unknown]
  - Weight increased [Unknown]
